FAERS Safety Report 10253475 (Version 1)
Quarter: 2014Q2

REPORT INFORMATION
  Report Type: Spontaneous
  Country: CO (occurrence: CO)
  Receive Date: 20140623
  Receipt Date: 20140623
  Transmission Date: 20141212
  Serious: Yes (Life-Threatening, Hospitalization)
  Sender: FDA-Public Use
  Company Number: CO-BRISTOL-MYERS SQUIBB COMPANY-21019443

PATIENT
  Sex: 0

DRUGS (3)
  1. ELIQUIS [Suspect]
  2. ASA [Concomitant]
  3. CLOPIDOGREL BISULFATE [Concomitant]

REACTIONS (1)
  - Adverse event [Unknown]
